FAERS Safety Report 25908664 (Version 1)
Quarter: 2025Q4

REPORT INFORMATION
  Report Type: 
  Country: CN (occurrence: CN)
  Receive Date: 20251010
  Receipt Date: 20251010
  Transmission Date: 20260117
  Serious: Yes (Life-Threatening, Hospitalization)
  Sender: JIANGSU HANSOH PHARMACEUTICAL GROUP CO., LTD.
  Company Number: CN-Hansoh-20252190018311

PATIENT
  Age: 62 Year
  Sex: Female
  Weight: 44 kg

DRUGS (4)
  1. FULVESTRANT [Suspect]
     Active Substance: FULVESTRANT
     Indication: Breast neoplasm
     Dosage: 0.5G,SINGLE DOSE
     Dates: start: 20250904, end: 20250904
  2. EXEMESTANE [Suspect]
     Active Substance: EXEMESTANE
     Indication: Breast neoplasm
     Dosage: 25MG,QD
     Route: 048
     Dates: start: 20250831, end: 20250929
  3. PALBOCICLIB [Suspect]
     Active Substance: PALBOCICLIB
     Indication: Breast neoplasm
     Dosage: 125MG,QD
     Route: 048
     Dates: start: 20250904, end: 20250925
  4. CAPECITABINE [Suspect]
     Active Substance: CAPECITABINE
     Indication: Breast neoplasm
     Dosage: 500MG,TID
     Route: 048
     Dates: start: 20250831, end: 20250929

REACTIONS (1)
  - Myelosuppression [Recovering/Resolving]

NARRATIVE: CASE EVENT DATE: 20250926
